FAERS Safety Report 8580956-6 (Version None)
Quarter: 2012Q3

REPORT INFORMATION
  Report Type: 
  Country: None (occurrence: None)
  Receive Date: 20120809
  Receipt Date: 20120807
  Transmission Date: 20120928
  Serious: No
  Sender: FDA-Public Use
  Company Number: US-PFIZER INC-2012192470

PATIENT
  Sex: Female

DRUGS (3)
  1. ZOLOFT [Suspect]
     Indication: DEPRESSION
     Dosage: 125 MG, 1X/DAY
     Route: 048
     Dates: start: 20090101
  2. ATIVAN [Concomitant]
     Indication: ANXIETY
     Dosage: UNK
  3. ZOLOFT [Suspect]
     Indication: ANXIETY

REACTIONS (1)
  - BACK PAIN [None]
